FAERS Safety Report 5809854-5 (Version None)
Quarter: 2008Q3

REPORT INFORMATION
  Report Type: 
  Country: None (occurrence: None)
  Receive Date: 20080714
  Receipt Date: 20080714
  Transmission Date: 20090109
  Serious: Yes (Other)
  Sender: FDA-Public Use
  Company Number: None

PATIENT
  Age: 52 Year
  Sex: Female
  Weight: 56.6996 kg

DRUGS (1)
  1. LEVAQUIN [Suspect]
     Dosage: 500 MG 1 A DAY PO
     Route: 048
     Dates: start: 20070807

REACTIONS (3)
  - ACTIVITIES OF DAILY LIVING IMPAIRED [None]
  - TENDON RUPTURE [None]
  - TENDONITIS [None]
